FAERS Safety Report 4559092-1 (Version None)
Quarter: 2005Q1

REPORT INFORMATION
  Report Type: 
  Country: None (occurrence: None)
  Receive Date: 20050120
  Receipt Date: 20050120
  Transmission Date: 20050727
  Serious: Yes (Life-Threatening, Hospitalization)
  Sender: FDA-Public Use
  Company Number: None

PATIENT
  Age: 70 Year
  Sex: Male
  Weight: 70.7611 kg

DRUGS (15)
  1. VISIPAQUE [Suspect]
     Dosage: 100 ML IV OTO
     Route: 042
     Dates: start: 20041001
  2. PRAVACHOL [Concomitant]
  3. GLYBURIDE [Concomitant]
  4. LASIX [Concomitant]
  5. COREG [Concomitant]
  6. ALTACE [Concomitant]
  7. NEURONTIN [Concomitant]
  8. CIPRO [Concomitant]
  9. FLOMAX [Concomitant]
  10. ASPIRIN [Concomitant]
  11. INSULIN [Concomitant]
  12. PAXIL [Concomitant]
  13. PROTONIX [Concomitant]
  14. LOVENOX [Concomitant]
  15. PLAVIX [Concomitant]

REACTIONS (7)
  - ANGIOPATHY [None]
  - CARDIAC DISORDER [None]
  - CONTRAST MEDIA REACTION [None]
  - HYPOTENSION [None]
  - MYOCARDIAL INFARCTION [None]
  - PULMONARY OEDEMA [None]
  - RENAL FAILURE ACUTE [None]
